FAERS Safety Report 14174502 (Version 4)
Quarter: 2017Q4

REPORT INFORMATION
  Report Type: Spontaneous
  Country: JP (occurrence: JP)
  Receive Date: 20171109
  Receipt Date: 20171127
  Transmission Date: 20180321
  Serious: Yes (Other)
  Sender: FDA-Public Use
  Company Number: JP-JNJFOC-20171108487

PATIENT
  Age: 89 Year
  Sex: Male

DRUGS (4)
  1. SILECE [Suspect]
     Active Substance: FLUNITRAZEPAM
     Indication: NEUROPSYCHIATRIC SYMPTOMS
     Route: 065
     Dates: start: 201710, end: 201710
  2. REMINYL [Suspect]
     Active Substance: GALANTAMINE
     Indication: DEMENTIA
     Route: 048
     Dates: start: 201710, end: 201710
  3. REMINYL [Suspect]
     Active Substance: GALANTAMINE
     Indication: DEMENTIA
     Route: 048
     Dates: start: 201710, end: 201710
  4. MEMARY [Concomitant]
     Active Substance: MEMANTINE HYDROCHLORIDE
     Indication: DEMENTIA
     Route: 048
     Dates: start: 201709, end: 201710

REACTIONS (3)
  - Pneumonia aspiration [Recovering/Resolving]
  - Sedation complication [Recovered/Resolved]
  - Dysphagia [Unknown]

NARRATIVE: CASE EVENT DATE: 201710
